FAERS Safety Report 5391419-3 (Version None)
Quarter: 2007Q3

REPORT INFORMATION
  Report Type: 
  Country: None (occurrence: None)
  Receive Date: 20070719
  Receipt Date: 20070711
  Transmission Date: 20080115
  Serious: Yes (Hospitalization)
  Sender: FDA-Public Use
  Company Number: IT-ROCHE-415236

PATIENT
  Age: 67 Year
  Sex: Male

DRUGS (2)
  1. DACLIZUMAB [Suspect]
     Route: 048
     Dates: start: 20050708, end: 20050708
  2. FK506 [Suspect]
     Route: 048
     Dates: start: 20050701, end: 20050810

REACTIONS (2)
  - CENTRAL PONTINE MYELINOLYSIS [None]
  - CEREBRAL HYGROMA [None]
